FAERS Safety Report 5881011-6 (Version None)
Quarter: 2008Q3

REPORT INFORMATION
  Report Type: 
  Country: None (occurrence: None)
  Receive Date: 20080912
  Receipt Date: 20080610
  Transmission Date: 20090109
  Serious: No
  Sender: FDA-Public Use
  Company Number: US-ABBOTT-08P-163-0457856-00

PATIENT
  Sex: Female
  Weight: 52.21 kg

DRUGS (3)
  1. HUMIRA [Suspect]
     Indication: CROHN'S DISEASE
     Route: 058
     Dates: start: 20061201, end: 20080413
  2. AZATHIOPRINE [Concomitant]
     Indication: CROHN'S DISEASE
     Dosage: 75 MG DAILY
     Route: 048
     Dates: start: 20030101
  3. FISH OIL [Concomitant]
     Indication: MUSCULOSKELETAL DISCOMFORT
     Route: 048

REACTIONS (6)
  - ABDOMINAL PAIN UPPER [None]
  - ARTHRITIS [None]
  - EYE SWELLING [None]
  - FATIGUE [None]
  - FEELING ABNORMAL [None]
  - HAEMATOCHEZIA [None]
